FAERS Safety Report 13757800 (Version 11)
Quarter: 2020Q3

REPORT INFORMATION
  Report Type: Report from Study
  Country: None (occurrence: US)
  Receive Date: 20170717
  Receipt Date: 20200703
  Transmission Date: 20201102
  Serious: Yes (Other)
  Sender: FDA-Public Use
  Company Number: US-ABBVIE-17K-163-2037686-00

PATIENT
  Age: 63 Year
  Sex: Female
  Weight: 88.53 kg

DRUGS (5)
  1. HUMIRA [Suspect]
     Active Substance: ADALIMUMAB
     Dosage: CITRATE FREE
     Route: 058
     Dates: start: 2015
  2. HUMIRA [Suspect]
     Active Substance: ADALIMUMAB
     Indication: RHEUMATOID ARTHRITIS
     Route: 058
  3. AMLODIPINE/VALSARTAN [Concomitant]
     Active Substance: AMLODIPINE\VALSARTAN
     Indication: PRODUCT USED FOR UNKNOWN INDICATION
  4. FOLIC ACID. [Concomitant]
     Active Substance: FOLIC ACID
     Indication: PRODUCT USED FOR UNKNOWN INDICATION
  5. METHOTREXATE. [Concomitant]
     Active Substance: METHOTREXATE
     Indication: PRODUCT USED FOR UNKNOWN INDICATION
     Dosage: 6?8 TABLET PER WEEK

REACTIONS (23)
  - Acoustic neuroma [Not Recovered/Not Resolved]
  - Sensitivity to weather change [Not Recovered/Not Resolved]
  - Pharyngeal swelling [Unknown]
  - Benign hepatic neoplasm [Unknown]
  - Osteoarthritis [Not Recovered/Not Resolved]
  - Hypoaesthesia [Recovering/Resolving]
  - Chronic granulomatous disease [Not Recovered/Not Resolved]
  - Granuloma [Not Recovered/Not Resolved]
  - Carotid artery disease [Not Recovered/Not Resolved]
  - Thyroid mass [Not Recovered/Not Resolved]
  - Limb discomfort [Unknown]
  - Pharyngitis streptococcal [Recovered/Resolved]
  - Sarcoidosis [Not Recovered/Not Resolved]
  - Lymphadenopathy [Not Recovered/Not Resolved]
  - Laryngitis [Recovered/Resolved]
  - Benign neoplasm of thyroid gland [Unknown]
  - Cataract [Unknown]
  - Poor quality sleep [Unknown]
  - Illness [Recovering/Resolving]
  - Paraesthesia [Recovering/Resolving]
  - Granulomatous lymphadenitis [Not Recovered/Not Resolved]
  - Tooth infection [Recovered/Resolved]
  - Lymph node calcification [Not Recovered/Not Resolved]

NARRATIVE: CASE EVENT DATE: 2016
